FAERS Safety Report 9496741 (Version 1)
Quarter: 2013Q3

REPORT INFORMATION
  Report Type: Spontaneous
  Country: US (occurrence: None)
  Receive Date: 20130903
  Receipt Date: 20130903
  Transmission Date: 20140515
  Serious: Yes (Life-Threatening, Hospitalization, Disabling)
  Sender: FDA-Public Use
  Company Number: None

PATIENT
  Age: 47 Year
  Sex: Male
  Weight: 117.94 kg

DRUGS (5)
  1. CHANTIX [Suspect]
     Indication: SMOKING CESSATION THERAPY
     Dosage: 1 PILL ONCE DAILY TAKEN BY MOUTH
     Route: 048
  2. LISINOPRIL [Concomitant]
  3. ASPRIN [Concomitant]
  4. ATENOLOL [Concomitant]
  5. MULTI VITAMIN [Concomitant]

REACTIONS (3)
  - Dyspnoea [None]
  - Dizziness [None]
  - Myocardial infarction [None]
